FAERS Safety Report 7382531-8 (Version None)
Quarter: 2011Q1

REPORT INFORMATION
  Report Type: 
  Country: None (occurrence: None)
  Receive Date: 20110329
  Receipt Date: 20110322
  Transmission Date: 20110831
  Serious: Yes (Life-Threatening, Hospitalization)
  Sender: FDA-Public Use
  Company Number: KR-BAYER-2011-009896

PATIENT
  Sex: Male

DRUGS (116)
  1. RANITIDINE [Concomitant]
     Dosage: 1 DF, BID
     Route: 048
     Dates: start: 20101218, end: 20101219
  2. RANITIDINE [Concomitant]
     Dosage: 50 MG, QD
     Route: 042
     Dates: start: 20110215, end: 20110215
  3. GASMOTIN [Concomitant]
     Indication: OESOPHAGITIS
     Dosage: 5 MG, TID
     Route: 048
     Dates: start: 20101207, end: 20101214
  4. TRAMACET [PARACETAMOL,TRAMADOL] [Concomitant]
     Dosage: 37.5 MG, BID
     Route: 048
     Dates: start: 20101217, end: 20101217
  5. PANTOLOC [Concomitant]
     Indication: GASTRITIS
     Dosage: 40 MG, QD
     Route: 042
     Dates: start: 20101213, end: 20101214
  6. PANTOLOC [Concomitant]
     Dosage: 40 MG, QD
     Route: 042
     Dates: start: 20110215
  7. VALIUM [Concomitant]
     Indication: SURGERY
     Dosage: 5 MG, QD
     Route: 048
     Dates: start: 20101214, end: 20101214
  8. VITAMIN K1 [Concomitant]
     Indication: SURGERY
     Dosage: 10 MG, BID
     Route: 030
     Dates: start: 20101215, end: 20101215
  9. MEICELIN [Concomitant]
     Indication: SURGERY
     Dosage: 1 G, TID
     Route: 042
     Dates: start: 20101215, end: 20101216
  10. BROMEL [Concomitant]
     Indication: SURGERY
     Dosage: 2.2 ML, BID
     Route: 042
     Dates: start: 20101215, end: 20101215
  11. ACETYLCYSTEINE [Concomitant]
     Indication: SURGERY
     Dosage: 2 ML, BID
     Route: 042
     Dates: start: 20101215, end: 20101215
  12. ACETYLCYSTEINE [Concomitant]
     Dosage: 2 ML, TID
     Route: 042
     Dates: start: 20101216, end: 20101216
  13. BOTROPASE [Concomitant]
     Dosage: 2 ML, UNK
     Route: 042
     Dates: start: 20110130
  14. TRAMADOL [Concomitant]
     Dosage: 50 MG, QD
     Route: 030
     Dates: start: 20110129, end: 20110129
  15. TRAMADOL [Concomitant]
     Dosage: 50 MG, BID
     Route: 030
     Dates: start: 20110130
  16. NORVASC [Concomitant]
     Indication: HYPERTENSION
     Dosage: 5 MG, QD
     Route: 048
     Dates: start: 20110103, end: 20110104
  17. MEK INHIBITOR (DIHYDROXYPROP-DIFLU-METHOXYPHEN-CYCLOPROPA-SULFAMI) [Suspect]
     Dosage: 50 MG, QD
     Route: 048
     Dates: start: 20110224, end: 20110224
  18. MEK INHIBITOR (DIHYDROXYPROP-DIFLU-METHOXYPHEN-CYCLOPROPA-SULFAMI) [Suspect]
     Dosage: 50 MG, BID
     Route: 048
     Dates: start: 20110225, end: 20110302
  19. RANITIDINE [Concomitant]
     Indication: GASTRITIS
     Dosage: 1 DF, QD
     Route: 048
     Dates: start: 20101217, end: 20101217
  20. MULTI-VITAMINS [Concomitant]
     Dosage: 1 DF, QD
     Route: 048
     Dates: start: 20101221, end: 20110128
  21. TYLENOL EXTENDED RELIEF [Concomitant]
     Indication: HEADACHE
     Dosage: 1300 MG, QD
     Route: 048
     Dates: start: 20101212, end: 20101213
  22. CASTOR OIL [Concomitant]
     Indication: SURGERY
     Dosage: 50 ML, QD
     Route: 048
     Dates: start: 20101214, end: 20101214
  23. GASTER [Concomitant]
     Indication: SURGERY
     Dosage: 20 MG, BID
     Route: 042
     Dates: start: 20101215, end: 20101216
  24. MIDAZOLAM [Concomitant]
     Indication: SURGERY
     Dosage: 3 MG, QD
     Route: 030
     Dates: start: 20101215, end: 20101215
  25. BOTROPASE [Concomitant]
     Dosage: 2 ML, BID
     Route: 042
     Dates: start: 20110129, end: 20110129
  26. TRAMADOL [Concomitant]
     Indication: ABDOMINAL PAIN
     Dosage: 50 MG, TID
     Route: 042
     Dates: start: 20101220, end: 20101220
  27. LIVACT [AMINO ACIDS NOS] [Concomitant]
     Dosage: 4.15 G, BID
     Route: 048
     Dates: start: 20110106, end: 20110112
  28. SMECTA [SMECTITE] [Concomitant]
     Indication: PROPHYLAXIS
     Dosage: 20 ML, BID
     Route: 048
     Dates: start: 20101230, end: 20110112
  29. NORVASC [Concomitant]
     Dosage: 5 MG, QD
     Route: 048
     Dates: start: 20110113, end: 20110128
  30. LASIX [Concomitant]
     Indication: HYPOALBUMINAEMIA
     Dosage: 1 ML, QD
     Route: 042
     Dates: start: 20110129, end: 20110129
  31. LEVOVIR [Concomitant]
     Dosage: 30 MG, QD
     Route: 048
     Dates: start: 20101221, end: 20110128
  32. MULTI-VITAMINS [Concomitant]
     Indication: MEDICAL DIET
     Dosage: 1 DF, QD
     Route: 048
     Dates: start: 20101207, end: 20101214
  33. MULTI-VITAMINS [Concomitant]
     Dosage: 1 DF, QD
     Route: 048
     Dates: start: 20101217, end: 20101219
  34. PANTOLOC [Concomitant]
     Dosage: 20 MG, QD
     Route: 042
     Dates: start: 20110113, end: 20110128
  35. LIVACT [AMINO ACIDS NOS] [Concomitant]
     Dosage: 4.15 G, TID
     Route: 048
     Dates: start: 20110113, end: 20110126
  36. DILATREND [Concomitant]
     Indication: HYPERTENSION
     Dosage: 12.5 MG, UNK
     Dates: start: 20110207
  37. MORPHINE SULFATE [Concomitant]
     Dosage: 5 MG, QD
     Route: 042
     Dates: start: 20110215
  38. SORAFENIB (RAF KINASE INHIBITOR) [Suspect]
     Dosage: 400 MG, BID
     Route: 048
     Dates: start: 20110225, end: 20110302
  39. GASMOTIN [Concomitant]
     Dosage: 5 MG, TID
     Route: 048
     Dates: start: 20101218, end: 20101219
  40. GASMOTIN [Concomitant]
     Dosage: 5 MG, QD
     Route: 048
     Dates: start: 20101220, end: 20101220
  41. UNCODEABLE ^UNCLASSIFIABLE^ [Concomitant]
     Indication: OESOPHAGITIS
     Dosage: 40 ML, TID
     Route: 048
     Dates: start: 20101209, end: 20101214
  42. UNCODEABLE ^UNCLASSIFIABLE^ [Concomitant]
     Dosage: 50 ML, QD
     Route: 048
     Dates: start: 20101220, end: 20101220
  43. BOTROPASE [Concomitant]
     Indication: SURGERY
     Dosage: 2 ML, BID
     Route: 042
     Dates: start: 20101215, end: 20101215
  44. ESMERON [Concomitant]
     Indication: SURGERY
     Dosage: 50 MG, QD
     Route: 042
     Dates: start: 20101215, end: 20101215
  45. LIDOCAINE [Concomitant]
     Dosage: UNK UNK, QD
     Route: 058
     Dates: start: 20110129, end: 20110129
  46. DIPEPTIVEN [Concomitant]
     Indication: MEDICAL DIET
     Dosage: 100 ML, QD
     Route: 042
     Dates: start: 20101216, end: 20101216
  47. CEFOTAXIME [Concomitant]
     Dosage: 1 G, QD
     Route: 042
     Dates: start: 20101218, end: 20101218
  48. ALLEGRA [Concomitant]
     Indication: PALMAR-PLANTAR ERYTHRODYSAESTHESIA SYNDROME
     Dosage: 120 MG, BID
     Route: 048
     Dates: start: 20110113, end: 20110128
  49. PETHIDINE HCL [Concomitant]
     Indication: ABDOMINAL PAIN
     Dosage: 50 MG, BID
     Route: 042
     Dates: start: 20110129, end: 20110129
  50. DUPHALAC [Concomitant]
     Indication: PROPHYLAXIS
     Dosage: 30 ML, BID
     Route: 050
     Dates: start: 20110130
  51. SORAFENIB (RAF KINASE INHIBITOR) [Suspect]
     Dosage: 200 MG, QD
     Route: 048
     Dates: start: 20110103, end: 20110103
  52. SORAFENIB (RAF KINASE INHIBITOR) [Suspect]
     Dosage: 400 MG, QD
     Route: 048
     Dates: start: 20110303
  53. RANITIDINE [Concomitant]
     Indication: OESOPHAGITIS
     Dosage: 1 DF, BID
     Route: 048
     Dates: start: 20101207, end: 20101214
  54. GASMOTIN [Concomitant]
     Dosage: 5 MG, TID
     Route: 048
     Dates: start: 20101221, end: 20101229
  55. GASMOTIN [Concomitant]
     Dosage: 5 MG, TID
     Route: 048
     Dates: start: 20110106, end: 20110126
  56. PANTOLOC [Concomitant]
     Indication: OESOPHAGITIS
     Dosage: 40 MG, QD
     Route: 042
     Dates: start: 20101204, end: 20101211
  57. PANTOLOC [Concomitant]
     Dosage: 40 MG, QD
     Route: 042
     Dates: start: 20110129
  58. FOY [Concomitant]
     Indication: SURGERY
     Dosage: 1500 MG, QD
     Route: 042
     Dates: start: 20101214, end: 20101214
  59. PYRIDOSTIGMINE BROMIDE [Concomitant]
     Indication: SURGERY
     Dosage: 20 MG, QD
     Route: 042
     Dates: start: 20101215, end: 20101215
  60. KETORACIN [Concomitant]
     Indication: ABDOMINAL PAIN
     Dosage: 30 MG, QD
     Route: 042
     Dates: start: 20101215, end: 20101216
  61. ULTRAVIST 150 [Concomitant]
     Dosage: 140 ML, QD
     Route: 042
     Dates: start: 20110215, end: 20110215
  62. LIVACT [AMINO ACIDS NOS] [Concomitant]
     Indication: PROPHYLAXIS
     Dosage: 4.15 G, TID
     Route: 048
     Dates: start: 20101230, end: 20110105
  63. LIVACT [AMINO ACIDS NOS] [Concomitant]
     Dosage: 4.15 G, BID
     Route: 048
     Dates: start: 20110127, end: 20110128
  64. HEPATAMINE [Concomitant]
     Indication: MEDICAL DIET
     Dosage: 500 ML, QD
     Route: 042
     Dates: start: 20110215
  65. ACTIQ [Concomitant]
     Indication: ABDOMINAL PAIN
     Dosage: 0.2 MG, TID
     Route: 048
     Dates: start: 20110224, end: 20110227
  66. UNCODEABLE ^UNCLASSIFIABLE^ [Concomitant]
     Indication: ASPARTATE AMINOTRANSFERASE INCREASED
     Dosage: 1 DF, TID
     Route: 048
     Dates: start: 20110302
  67. MEK INHIBITOR (DIHYDROXYPROP-DIFLU-METHOXYPHEN-CYCLOPROPA-SULFAMI) [Suspect]
     Dosage: 50/30 MG, QD
     Route: 048
     Dates: start: 20110303, end: 20110303
  68. SORAFENIB (RAF KINASE INHIBITOR) [Suspect]
     Dosage: 600 MG (200 MG/400 MG), QD
     Route: 048
     Dates: start: 20101231, end: 20110102
  69. SORAFENIB (RAF KINASE INHIBITOR) [Suspect]
     Dosage: 400 MG, QD
     Route: 048
     Dates: start: 20110113, end: 20110127
  70. SORAFENIB (RAF KINASE INHIBITOR) [Suspect]
     Dosage: 400 MG, BID
     Route: 048
     Dates: start: 20110128, end: 20110128
  71. RANITIDINE [Concomitant]
     Dosage: 1 DF, BID
     Route: 048
     Dates: start: 20101221, end: 20110128
  72. LEVOVIR [Concomitant]
     Indication: HEPATITIS B
     Dosage: 30 MG, QD
     Route: 048
     Dates: start: 20101207, end: 20101214
  73. LEVOVIR [Concomitant]
     Dosage: 30 MG, QD
     Route: 048
     Dates: start: 20101217, end: 20101219
  74. DURAGESIC-100 [Concomitant]
     Indication: ABDOMINAL PAIN
     Dosage: 12.5 ?G, QD
     Dates: start: 20101213, end: 20101213
  75. DURAGESIC-100 [Concomitant]
     Dosage: 25 ?G, BIW
     Dates: start: 20101221, end: 20101223
  76. VITAMIN K1 [Concomitant]
     Dosage: 10 MG, QD
     Route: 030
     Dates: start: 20101216, end: 20101216
  77. ORNITHINE ASPARTATE [Concomitant]
     Indication: SURGERY
     Dosage: 20 ML, QD
     Route: 042
     Dates: start: 20101215, end: 20101216
  78. BROMEL [Concomitant]
     Dosage: 2.2 ML, TID
     Route: 042
     Dates: start: 20101216, end: 20101216
  79. PROPOFOL [Concomitant]
     Indication: SURGERY
     Dosage: 120 MG, QD
     Route: 042
     Dates: start: 20101215, end: 20101215
  80. ACETYLCYSTEINE [Concomitant]
     Dosage: 200 MG, TID
     Route: 048
     Dates: start: 20101218, end: 20101219
  81. ACETYLCYSTEINE [Concomitant]
     Dosage: 200 MG, TID
     Route: 048
     Dates: start: 20101221, end: 20101229
  82. PRIMOVIST [Concomitant]
     Indication: NUCLEAR MAGNETIC RESONANCE IMAGING
     Dosage: 10 CC, QD
     Route: 042
     Dates: start: 20101213, end: 20101213
  83. CEFOTAXIME [Concomitant]
     Dosage: 2 G, TID
     Route: 042
     Dates: start: 20101218, end: 20101221
  84. ADALAT [Concomitant]
     Indication: HYPERTENSION
     Dosage: 60 MG, QD
     Route: 048
     Dates: start: 20110130
  85. ALBUMIN (HUMAN) [Concomitant]
     Indication: HYPOALBUMINAEMIA
     Dosage: 100 ML, QD
     Route: 042
     Dates: start: 20110129, end: 20110129
  86. NALOXONE [Concomitant]
     Indication: MUSCULAR WEAKNESS
     Dosage: 0.2 MG, QD
     Route: 042
     Dates: start: 20110227, end: 20110227
  87. MEK INHIBITOR (DIHYDROXYPROP-DIFLU-METHOXYPHEN-CYCLOPROPA-SULFAMI) [Suspect]
     Dosage: 50 MG, BID
     Route: 048
     Dates: start: 20101231, end: 20110128
  88. SORAFENIB (RAF KINASE INHIBITOR) [Suspect]
     Dosage: 400 MG, QD
     Route: 048
     Dates: start: 20110106, end: 20110110
  89. SORAFENIB (RAF KINASE INHIBITOR) [Suspect]
     Dosage: 200 MG, QD
     Route: 048
     Dates: start: 20110111, end: 20110111
  90. GASMOTIN [Concomitant]
     Dosage: 5 MG, BID
     Route: 048
     Dates: start: 20101217, end: 20101217
  91. GASMOTIN [Concomitant]
     Dosage: 5 MG, BID
     Route: 048
     Dates: start: 20110127, end: 20110128
  92. UNCODEABLE ^UNCLASSIFIABLE^ [Concomitant]
     Dosage: 50 ML, TID
     Route: 048
     Dates: start: 20101221, end: 20101223
  93. PROPOFOL [Concomitant]
     Indication: ENDOSCOPY
     Dosage: 80 MG, QD
     Route: 042
     Dates: start: 20110208, end: 20110208
  94. CEFOTAXIME [Concomitant]
     Indication: SURGERY
     Dosage: 1 G, BID
     Route: 042
     Dates: start: 20101217, end: 20101217
  95. NUTRIFLEX LIPID [AMINO ACIDS NOS,CARBOHYDRATES NOS,ELECTROLYTES NOS,LI [Concomitant]
     Indication: MEDICAL DIET
     Dosage: 1.250 ML, QD
     Route: 042
     Dates: start: 20101220, end: 20101220
  96. ULTRAVIST 150 [Concomitant]
     Dosage: 140 ML, QD
     Route: 042
     Dates: start: 20110129, end: 20110129
  97. ULTRAVIST 150 [Concomitant]
     Dosage: 140 ML, UNK
     Route: 042
     Dates: start: 20110201, end: 20110201
  98. NORVASC [Concomitant]
     Indication: PROPHYLAXIS
     Dosage: 5 MG, QD
     Route: 048
     Dates: start: 20110106, end: 20110110
  99. ADALAT [Concomitant]
     Dosage: 30 MG, QD
     Route: 048
     Dates: start: 20110131
  100. SILYMARIN [Concomitant]
     Indication: MEDICAL DIET
     Dosage: 500 ML, QD
     Route: 042
     Dates: start: 20110130
  101. ACTIQ [Concomitant]
     Dosage: 0.2 MG, QD
     Route: 048
     Dates: start: 20110228
  102. MEK INHIBITOR (DIHYDROXYPROP-DIFLU-METHOXYPHEN-CYCLOPROPA-SULFAMI) [Suspect]
     Indication: HEPATIC NEOPLASM MALIGNANT
     Dosage: 50 MG, QD
     Route: 048
     Dates: start: 20101230, end: 20101230
  103. MEK INHIBITOR (DIHYDROXYPROP-DIFLU-METHOXYPHEN-CYCLOPROPA-SULFAMI) [Suspect]
     Dosage: 30 MG, BID
     Dates: start: 20110304
  104. SORAFENIB (RAF KINASE INHIBITOR) [Suspect]
     Indication: HEPATIC NEOPLASM MALIGNANT
     Dosage: 200 MG, QD
     Route: 048
     Dates: start: 20101230, end: 20101230
  105. SORAFENIB (RAF KINASE INHIBITOR) [Suspect]
     Dosage: 400 MG, QD
     Route: 048
     Dates: start: 20110224, end: 20110224
  106. TRAMACET [PARACETAMOL,TRAMADOL] [Concomitant]
     Indication: ABDOMINAL PAIN
     Dosage: 37.5 MG, TID
     Route: 048
     Dates: start: 20101207, end: 20101214
  107. TRAMACET [PARACETAMOL,TRAMADOL] [Concomitant]
     Dosage: 37.5 MG, TID
     Route: 048
     Dates: start: 20101218, end: 20101219
  108. METOCLOPRAMIDE HCL [Concomitant]
     Indication: OESOPHAGITIS
     Dosage: 10 MG, QD
     Route: 042
     Dates: start: 20101214, end: 20101214
  109. FENTANYL CITRATE [Concomitant]
     Indication: SURGERY
     Dosage: 0.1 MG, QD
     Route: 042
     Dates: start: 20101215, end: 20101215
  110. ADELAVIN [Concomitant]
     Indication: SURGERY
     Dosage: 2 ML, QD
     Route: 042
     Dates: start: 20101215, end: 20101216
  111. LIDOCAINE [Concomitant]
     Indication: SURGERY
     Dosage: UNK UNK, QD
     Route: 061
     Dates: start: 20101215, end: 20101215
  112. GLYCOPYRROLATE [Concomitant]
     Indication: SURGERY
     Dosage: 0.4 MG, QD
     Route: 042
     Dates: start: 20101215, end: 20101215
  113. GLAMIN [Concomitant]
     Indication: MEDICAL DIET
     Dosage: 500 ML, QD
     Route: 042
     Dates: start: 20101216, end: 20101216
  114. ACETYLCYSTEINE [Concomitant]
     Indication: PROPHYLAXIS
     Dosage: 200 MG, QD
     Route: 048
     Dates: start: 20101220, end: 20101220
  115. ULTRAVIST 150 [Concomitant]
     Indication: NUCLEAR MAGNETIC RESONANCE IMAGING
     Dosage: 140 ML, QD
     Route: 042
     Dates: start: 20101221, end: 20101221
  116. NORMIX [Concomitant]
     Indication: PROPHYLAXIS
     Dosage: 400 MG, BID
     Route: 050
     Dates: start: 20110130

REACTIONS (4)
  - ASPARTATE AMINOTRANSFERASE INCREASED [None]
  - HYPOKALAEMIA [None]
  - LIVER CARCINOMA RUPTURED [None]
  - ABDOMINAL PAIN [None]
